FAERS Safety Report 19197611 (Version 1)
Quarter: 2021Q2

REPORT INFORMATION
  Report Type: Spontaneous
  Country: JP (occurrence: JP)
  Receive Date: 20210429
  Receipt Date: 20210429
  Transmission Date: 20210717
  Serious: Yes (Other)
  Sender: FDA-Public Use
  Company Number: JP-SYNEX-T202101886

PATIENT
  Age: 4 Month
  Sex: Male

DRUGS (4)
  1. INOFLO [Suspect]
     Active Substance: NITRIC OXIDE
     Dosage: UNK, DOSE DECREASED, INHALATION
     Route: 055
  2. EPOPROSTENOL. [Suspect]
     Active Substance: EPOPROSTENOL
     Indication: PULMONARY HYPERTENSION
     Dosage: UNK, CONTINUOUS INFUSION
     Route: 065
  3. INOFLO [Suspect]
     Active Substance: NITRIC OXIDE
     Indication: PULMONARY HYPERTENSION
     Dosage: UNK (INHALATION)
     Route: 055
  4. EPOPROSTENOL. [Suspect]
     Active Substance: EPOPROSTENOL
     Dosage: UNK, DOSE DECREASED
     Route: 065

REACTIONS (4)
  - Pleural effusion [Recovered/Resolved]
  - Product use in unapproved indication [Unknown]
  - Product use issue [Unknown]
  - Pulmonary congestion [Recovered/Resolved]
